FAERS Safety Report 4956972-X (Version None)
Quarter: 2006Q1

REPORT INFORMATION
  Report Type: 
  Country: None (occurrence: None)
  Receive Date: 20060127
  Receipt Date: 20041220
  Transmission Date: 20060701
  Serious: Yes (Other)
  Sender: FDA-Public Use
  Company Number: 04-11-1633

PATIENT
  Age: 34 Year
  Sex: Female
  Weight: 98.8842 kg

DRUGS (6)
  1. CLOZAPINE [Suspect]
     Indication: SCHIZOAFFECTIVE DISORDER
     Dosage: 250MG QD, ORAL
     Route: 048
     Dates: start: 20000818, end: 20020509
  2. ISONIAZID [Suspect]
     Indication: TUBERCULIN TEST POSITIVE
     Dosage: 300MG QD
     Dates: start: 20011001, end: 20020701
  3. DIVALPROEX SODIUM [Concomitant]
  4. COGENTIN [Concomitant]
  5. RISPERIDONE [Concomitant]
  6. KLONOPIN [Concomitant]

REACTIONS (1)
  - NEUTROPENIA [None]
